FAERS Safety Report 6671243-1 (Version None)
Quarter: 2010Q2

REPORT INFORMATION
  Report Type: 
  Country: None (occurrence: None)
  Receive Date: 20100407
  Receipt Date: 20100324
  Transmission Date: 20101027
  Serious: No
  Sender: FDA-Public Use
  Company Number: US-B.I. PHARMACEUTICALS,INC./RIDGEFIELD-2010-BP-03433BP

PATIENT
  Age: 86 Year
  Sex: Female

DRUGS (11)
  1. CATAPRES-TTS-1 [Suspect]
     Indication: HYPERTENSION
     Dosage: 0.2 MG
     Route: 061
     Dates: start: 20100101
  2. BENAZEPRIL HYDROCHLORIDE [Concomitant]
     Indication: HYPERTENSION
  3. HYTRIN [Concomitant]
     Indication: HYPERTENSION
  4. EDECRIN [Concomitant]
     Indication: HYPERTENSION
  5. LESCOL [Concomitant]
     Indication: BLOOD CHOLESTEROL INCREASED
  6. ZETIA [Concomitant]
     Indication: BLOOD CHOLESTEROL INCREASED
  7. LEVOTHYROXINE SODIUM [Concomitant]
     Indication: HYPOTHYROIDISM
  8. ASPIRIN [Concomitant]
     Indication: PROPHYLAXIS
  9. OSCAL [Concomitant]
     Indication: PROPHYLAXIS
  10. IRON [Concomitant]
     Indication: PROPHYLAXIS
  11. POTASSIUM [Concomitant]
     Indication: PROPHYLAXIS

REACTIONS (3)
  - APPLICATION SITE ERYTHEMA [None]
  - APPLICATION SITE PRURITUS [None]
  - APPLICATION SITE SWELLING [None]
